FAERS Safety Report 21362002 (Version 2)
Quarter: 2022Q4

REPORT INFORMATION
  Report Type: Spontaneous
  Country: FR (occurrence: FR)
  Receive Date: 20220922
  Receipt Date: 20221006
  Transmission Date: 20230112
  Serious: Yes (Other)
  Sender: FDA-Public Use
  Company Number: FR-AFSSAPS-AN20221974

PATIENT
  Age: 42 Year
  Sex: Female
  Weight: 87 kg

DRUGS (7)
  1. QUETIAPINE [Suspect]
     Active Substance: QUETIAPINE
     Indication: Schizophrenia
     Dosage: 250 MILLIGRAM, ONCE A DAY
     Route: 048
     Dates: start: 202011, end: 202102
  2. SERTRALINE [Suspect]
     Active Substance: SERTRALINE HYDROCHLORIDE
     Indication: Depression
     Dosage: 75 MILLIGRAM, ONCE A DAY
     Route: 048
     Dates: start: 202012
  3. LORMETAZEPAM [Suspect]
     Active Substance: LORMETAZEPAM
     Indication: Insomnia
     Dosage: 0.5 MILLIGRAM, ONCE A DAY
     Route: 048
  4. MIRTAZAPINE [Suspect]
     Active Substance: MIRTAZAPINE
     Indication: Depression
     Dosage: 15 MILLIGRAM, ONCE A DAY
     Route: 048
  5. RISPERDAL [Suspect]
     Active Substance: RISPERIDONE
     Indication: Schizophrenia
     Dosage: 1 DOSAGE FORM, ONCE A DAY
     Route: 048
     Dates: start: 200104, end: 202102
  6. VALIUM [Suspect]
     Active Substance: DIAZEPAM
     Indication: Anxiety
     Dosage: 5 MILLIGRAM, ONCE A DAY
     Route: 048
  7. MELATONIN [Concomitant]
     Active Substance: MELATONIN
     Indication: Product used for unknown indication
     Dosage: 1 DOSAGE FORM, ONCE A DAY
     Route: 048
     Dates: start: 202103

REACTIONS (3)
  - Tardive dyskinesia [Recovering/Resolving]
  - Ataxia [Recovering/Resolving]
  - Vision blurred [Not Recovered/Not Resolved]

NARRATIVE: CASE EVENT DATE: 20210201
